FAERS Safety Report 22362231 (Version 1)
Quarter: 2023Q2

REPORT INFORMATION
  Report Type: Spontaneous
  Country: NO (occurrence: NO)
  Receive Date: 20230524
  Receipt Date: 20230524
  Transmission Date: 20230721
  Serious: Yes (Life-Threatening, Hospitalization, Other)
  Sender: FDA-Public Use
  Company Number: NO-JAZZ PHARMACEUTICALS-2023-NO-011242

PATIENT
  Age: 81 Year
  Sex: Female

DRUGS (1)
  1. XYREM [Suspect]
     Active Substance: SODIUM OXYBATE
     Indication: Product used for unknown indication
     Dosage: FREQUENCY: UNK

REACTIONS (3)
  - Poisoning [Recovered/Resolved]
  - Accidental overdose [Unknown]
  - Accidental exposure to product by elderly person [Unknown]
